FAERS Safety Report 4784357-8 (Version None)
Quarter: 2005Q3

REPORT INFORMATION
  Report Type: 
  Country: None (occurrence: None)
  Receive Date: 20050929
  Receipt Date: 20050929
  Transmission Date: 20060218
  Serious: No
  Sender: FDA-Public Use
  Company Number: None

PATIENT
  Age: 57 Year
  Sex: Male
  Weight: 125.2 kg

DRUGS (14)
  1. PIROXICAM [Suspect]
     Indication: OSTEOARTHRITIS
     Dosage: 20MG,20 MG QD,ORAL
     Route: 048
  2. SIMVASTATIN [Concomitant]
  3. SODIUM CHLORIDE [Concomitant]
  4. HYDROCODONE 5/ACETAMINOPHEN [Concomitant]
  5. SILDENAFIL CITRATE [Concomitant]
  6. LISINOPRIL [Concomitant]
  7. LORATADINE [Concomitant]
  8. PSEUDOEPHEDRINE HCL [Concomitant]
  9. GATIFLOXACIN [Concomitant]
  10. GG 600/PSEUDOEPHEDRINE [Concomitant]
  11. AZITHROMYCIN [Concomitant]
  12. DM 10/GUAIFENESN 100MG/5ML (ALC-F/SF) [Concomitant]
  13. PIROXICAM [Concomitant]
  14. HYDROCHLOROTHIAZIDE [Concomitant]

REACTIONS (1)
  - RASH [None]
